FAERS Safety Report 4531907-2 (Version None)
Quarter: 2004Q4

REPORT INFORMATION
  Report Type: 
  Country: None (occurrence: None)
  Receive Date: 20041216
  Receipt Date: 20041206
  Transmission Date: 20050328
  Serious: Yes (Other)
  Sender: FDA-Public Use
  Company Number: 2004108235

PATIENT
  Sex: Female

DRUGS (2)
  1. CELEBREX [Suspect]
     Indication: OSTEOARTHRITIS
     Dosage: 1 YEAR AGO
  2. BEXTRA [Suspect]
     Indication: OSTEOARTHRITIS

REACTIONS (1)
  - KNEE ARTHROPLASTY [None]
